FAERS Safety Report 25543935 (Version 1)
Quarter: 2025Q3

REPORT INFORMATION
  Report Type: Spontaneous
  Country: US (occurrence: None)
  Receive Date: 20250710
  Receipt Date: 20250710
  Transmission Date: 20251021
  Serious: Yes (Disabling)
  Sender: FDA-CTU
  Company Number: None

PATIENT
  Age: 52 Year
  Sex: Female
  Weight: 90 kg

DRUGS (8)
  1. GABAPENTIN [Suspect]
     Active Substance: GABAPENTIN
     Indication: Neuropathy peripheral
     Dosage: OTHER QUANTITY : 1 CAPSULE(S);?FREQUENCY : AT BEDTIME;?
     Route: 048
     Dates: start: 20250709, end: 20250710
  2. PREDNISONE [Concomitant]
     Active Substance: PREDNISONE
  3. FAMOTIDINE [Concomitant]
     Active Substance: FAMOTIDINE
  4. ESTRADIOL [Concomitant]
     Active Substance: ESTRADIOL
  5. GABAPENTIN [Concomitant]
     Active Substance: GABAPENTIN
  6. MULTI-VITAMIN [Concomitant]
     Active Substance: .ALPHA.-TOCOPHEROL ACETATE, DL-\ASCORBIC ACID\CYANOCOBALAMIN\FLUORIDE ION\FOLIC ACID\NIACIN\PYRIDOXI
  7. magnesium oxalate [Concomitant]
  8. VITAMIN D [Concomitant]
     Active Substance: VITAMIN D NOS

REACTIONS (5)
  - Dizziness [None]
  - Vision blurred [None]
  - Dysphonia [None]
  - Chest discomfort [None]
  - Dysphagia [None]

NARRATIVE: CASE EVENT DATE: 20250710
